FAERS Safety Report 24428568 (Version 1)
Quarter: 2024Q4

REPORT INFORMATION
  Report Type: Report from Study
  Country: AU (occurrence: AU)
  Receive Date: 20241011
  Receipt Date: 20241011
  Transmission Date: 20250115
  Serious: Yes (Life-Threatening)
  Sender: NOVARTIS
  Company Number: AU-002147023-NVSC2024AU199113

PATIENT
  Age: 69 Year
  Sex: Female
  Weight: 67 kg

DRUGS (1)
  1. KISQALI [Suspect]
     Active Substance: RIBOCICLIB
     Indication: Hormone receptor positive breast cancer
     Dosage: 400 MG, QD (TABLET)
     Route: 048
     Dates: start: 20231115, end: 20240915

REACTIONS (2)
  - Electrocardiogram QT prolonged [Recovered/Resolved]
  - Syncope [Recovered/Resolved]

NARRATIVE: CASE EVENT DATE: 20240915
